FAERS Safety Report 13863783 (Version 2)
Quarter: 2017Q3

REPORT INFORMATION
  Report Type: Report from Study
  Country: US (occurrence: US)
  Receive Date: 20170814
  Receipt Date: 20170817
  Transmission Date: 20171127
  Serious: Yes (Hospitalization, Other)
  Sender: FDA-Public Use
  Company Number: US-ASTRAZENECA-2016SE95917

PATIENT
  Age: 1009 Month
  Sex: Female
  Weight: 97.1 kg

DRUGS (10)
  1. SYMBICORT [Suspect]
     Active Substance: BUDESONIDE\FORMOTEROL FUMARATE DIHYDRATE
     Indication: CHRONIC OBSTRUCTIVE PULMONARY DISEASE
     Dosage: 160/4.5 UG 2 PUFFS TWICE A DAY
     Route: 055
     Dates: start: 2014, end: 20160903
  2. SYMBICORT [Suspect]
     Active Substance: BUDESONIDE\FORMOTEROL FUMARATE DIHYDRATE
     Indication: CHRONIC OBSTRUCTIVE PULMONARY DISEASE
     Dosage: 160/4.5 UG 2 PUFFS TWICE A DAY
     Route: 055
     Dates: start: 201609
  3. SYMBICORT [Suspect]
     Active Substance: BUDESONIDE\FORMOTEROL FUMARATE DIHYDRATE
     Indication: DYSPNOEA
     Dosage: 160/4.5 UG 2 PUFFS TWICE A DAY
     Route: 055
     Dates: start: 2014, end: 20160903
  4. SYMBICORT [Suspect]
     Active Substance: BUDESONIDE\FORMOTEROL FUMARATE DIHYDRATE
     Indication: CHRONIC OBSTRUCTIVE PULMONARY DISEASE
     Dosage: 160/4.5 UG 1 PUFF TWICE A DAY WHEN SHE GOT TO THE YELLOW MARK ON THE INHALER, BECAUSE SHE WAS TRY...
     Route: 055
  5. SYMBICORT [Suspect]
     Active Substance: BUDESONIDE\FORMOTEROL FUMARATE DIHYDRATE
     Indication: DYSPNOEA
     Dosage: 160/4.5 UG 2 PUFFS TWICE A DAY
     Route: 055
     Dates: start: 201609
  6. GABAPENTIN. [Concomitant]
     Active Substance: GABAPENTIN
     Indication: PAIN
  7. PREVACID [Concomitant]
     Active Substance: LANSOPRAZOLE
  8. SYMBICORT [Suspect]
     Active Substance: BUDESONIDE\FORMOTEROL FUMARATE DIHYDRATE
     Indication: DYSPNOEA
     Dosage: 160/4.5 UG 1 PUFF TWICE A DAY WHEN SHE GOT TO THE YELLOW MARK ON THE INHALER, BECAUSE SHE WAS TRY...
     Route: 055
  9. K DUR [Concomitant]
     Indication: BLOOD CHOLESTEROL ABNORMAL
  10. GABAPENTIN. [Concomitant]
     Active Substance: GABAPENTIN
     Indication: NEURALGIA

REACTIONS (14)
  - Eye disorder [Unknown]
  - Eye infection [Unknown]
  - Intentional product misuse [Unknown]
  - Drug dose omission [Unknown]
  - Pneumonia [Unknown]
  - Coronary artery disease [Unknown]
  - Blindness unilateral [Unknown]
  - Dyspnoea [Unknown]
  - Bronchitis [Unknown]
  - Arthritis [Unknown]
  - Musculoskeletal discomfort [Unknown]
  - Foreign body sensation in eyes [Unknown]
  - Condition aggravated [Unknown]
  - Eye pain [Unknown]

NARRATIVE: CASE EVENT DATE: 201504
